FAERS Safety Report 9986288 (Version 1)
Quarter: 2014Q1

REPORT INFORMATION
  Report Type: Report from Study
  Country: US (occurrence: US)
  Receive Date: 20140307
  Receipt Date: 20140307
  Transmission Date: 20141002
  Serious: No
  Sender: FDA-Public Use
  Company Number: US-ABBVIE-13P-163-1087957-00

PATIENT
  Age: 44 Year
  Sex: Female

DRUGS (11)
  1. HUMIRA [Suspect]
     Indication: RHEUMATOID ARTHRITIS
     Dates: start: 201104, end: 201208
  2. HUMIRA [Suspect]
     Dates: start: 201208, end: 201210
  3. HUMIRA [Suspect]
     Dosage: OFF AND ON
     Dates: start: 201210, end: 201302
  4. HUMIRA [Suspect]
     Dates: start: 20130410
  5. DIAZEPAM [Concomitant]
     Indication: INSOMNIA
     Dosage: AT BEDTIME
  6. HYDROCODONE [Concomitant]
     Indication: BACK PAIN
  7. HYDROCODONE [Concomitant]
     Indication: INTERVERTEBRAL DISC PROTRUSION
  8. HYDROCODONE [Concomitant]
     Indication: ROAD TRAFFIC ACCIDENT
  9. SINGULAIR [Concomitant]
     Indication: HYPERSENSITIVITY
  10. ALBUTEROL [Concomitant]
     Indication: ASTHMA
  11. NASONEX [Concomitant]
     Indication: HYPERSENSITIVITY

REACTIONS (8)
  - Fatigue [Unknown]
  - Injection site pain [Recovered/Resolved]
  - Sinusitis [Recovered/Resolved]
  - Sinusitis [Recovered/Resolved]
  - Genital infection fungal [Recovered/Resolved]
  - Genital infection fungal [Recovered/Resolved]
  - Injection site mass [Recovered/Resolved]
  - Irritable bowel syndrome [Unknown]
